FAERS Safety Report 13164020 (Version 1)
Quarter: 2017Q1

REPORT INFORMATION
  Report Type: Spontaneous
  Country: US (occurrence: US)
  Receive Date: 20170130
  Receipt Date: 20170130
  Transmission Date: 20170428
  Serious: Yes (Hospitalization)
  Sender: FDA-Public Use
  Company Number: US-LPDUSPRD-20170049

PATIENT
  Age: 16 Year
  Sex: Female

DRUGS (9)
  1. CHLOROQUINE. [Suspect]
     Active Substance: CHLOROQUINE
     Dosage: 250 MG
     Route: 065
  2. FLUOXETINE [Concomitant]
     Active Substance: FLUOXETINE HYDROCHLORIDE
     Dosage: UNKNOWN
  3. OLANZAPINE FOR INJECTION (0517-0955-01) [Suspect]
     Active Substance: OLANZAPINE
     Dosage: UNKNOWN
     Route: 065
  4. BENZTROPINE MESYLATE INJECTION, USP (0785-05) [Suspect]
     Active Substance: BENZTROPINE MESYLATE
     Dosage: UNKNOWN
     Route: 065
  5. DIPHENHYDRAMINE. [Suspect]
     Active Substance: DIPHENHYDRAMINE
     Dosage: UNKNOWN
     Route: 065
  6. LORAZEPAM. [Concomitant]
     Active Substance: LORAZEPAM
     Dosage: UNKNOWN
  7. AZITHROMYCIN ANHYDROUS. [Concomitant]
     Active Substance: AZITHROMYCIN ANHYDROUS
     Route: 065
  8. RISPERIDONE. [Concomitant]
     Active Substance: RISPERIDONE
  9. CLONAZEPAM. [Concomitant]
     Active Substance: CLONAZEPAM
     Dosage: UNKNOWN
     Route: 065

REACTIONS (21)
  - Toxicity to various agents [None]
  - Areflexia [None]
  - Facial paralysis [None]
  - Oropharyngeal pain [None]
  - Condition aggravated [Unknown]
  - Paranoia [None]
  - Feeling guilty [None]
  - Dysphonia [None]
  - Amaurosis [None]
  - Genital pain [None]
  - Insomnia [None]
  - Hallucination, auditory [None]
  - Mydriasis [None]
  - Anxiety [None]
  - Inappropriate affect [None]
  - Fatigue [None]
  - Orthostatic intolerance [None]
  - Catatonia [None]
  - Hallucination, visual [None]
  - Confusional state [None]
  - Suicidal ideation [None]
